FAERS Safety Report 14312148 (Version 4)
Quarter: 2018Q1

REPORT INFORMATION
  Report Type: Spontaneous
  Country: CZ (occurrence: CZ)
  Receive Date: 20171221
  Receipt Date: 20180316
  Transmission Date: 20180509
  Serious: Yes (Death, Other)
  Sender: FDA-Public Use
  Company Number: CZ-AMGEN-CZESP2017188284

PATIENT
  Age: 14 Year
  Sex: Male
  Weight: 21 kg

DRUGS (6)
  1. CHOLECALCIFEROL [Concomitant]
     Active Substance: CHOLECALCIFEROL
     Dosage: 1000 IU, QD
     Route: 048
  2. VALPROATE [Concomitant]
     Active Substance: VALPROIC ACID
     Dosage: 300 MG, QD
     Route: 048
  3. PROLIA [Suspect]
     Active Substance: DENOSUMAB
     Indication: OSTEOPOROSIS
     Dosage: 60 MG, Q6MO
     Route: 058
  4. PROLIA [Suspect]
     Active Substance: DENOSUMAB
     Indication: FRACTURE
  5. PROLIA [Suspect]
     Active Substance: DENOSUMAB
     Indication: SPINAL MUSCULAR ATROPHY
  6. CALCIUM [Concomitant]
     Active Substance: CALCIUM
     Dosage: 500-1000 MG
     Route: 048

REACTIONS (4)
  - Femur fracture [Unknown]
  - Pneumonia [Unknown]
  - Off label use [Unknown]
  - Respiratory failure [Fatal]
